FAERS Safety Report 7487334-1 (Version None)
Quarter: 2011Q2

REPORT INFORMATION
  Report Type: 
  Country: None (occurrence: None)
  Receive Date: 20110510
  Receipt Date: 20110425
  Transmission Date: 20111010
  Serious: Yes (Other)
  Sender: FDA-Public Use
  Company Number: 032054

PATIENT
  Sex: Female

DRUGS (2)
  1. TYKERB [Suspect]
     Indication: BREAST CANCER METASTATIC
     Dosage: (1250 MG ORAL)
     Route: 048
     Dates: start: 20110416, end: 20110418
  2. KEPPRA [Suspect]
     Indication: CONVULSION

REACTIONS (1)
  - CONVULSION [None]
